FAERS Safety Report 6872210-5 (Version None)
Quarter: 2010Q3

REPORT INFORMATION
  Report Type: 
  Country: None (occurrence: None)
  Receive Date: 20100721
  Receipt Date: 20100715
  Transmission Date: 20110219
  Serious: Yes (Hospitalization)
  Sender: FDA-Public Use
  Company Number: 2010SP024086

PATIENT
  Age: 29 Year
  Sex: Male
  Weight: 70.3075 kg

DRUGS (15)
  1. PEG-INTRON [Suspect]
     Indication: HEPATITIS C
     Dosage: 120 MCG; SC
     Route: 058
     Dates: start: 20091124, end: 20100419
  2. REBETOL [Suspect]
     Indication: HEPATITIS C
     Dosage: 1000 MG; PO
     Route: 048
     Dates: start: 20091124, end: 20100423
  3. REMICADE [Suspect]
     Indication: HEPATITIS C
     Dosage: 393.18 MG; IV
     Route: 042
     Dates: start: 20091124, end: 20100111
  4. BUSPAR (CON.) [Concomitant]
  5. FLEXERIL (CON.) [Concomitant]
  6. ACYCLOVIR (CON.) [Concomitant]
  7. AMLACTIN (CON.) [Concomitant]
  8. ATIVAN (CON.) [Concomitant]
  9. ULTRAM (CON.) [Concomitant]
  10. MOTRIN (CON.) [Concomitant]
  11. PERCOCET (CON.) [Concomitant]
  12. KEFLEX (CON.) [Concomitant]
  13. KLONOPIN (CON.) [Concomitant]
  14. CELEXA (CON.) [Concomitant]
  15. MODAFINIL (CON.) [Concomitant]

REACTIONS (1)
  - DRUG ABUSE [None]
